FAERS Safety Report 16783508 (Version 1)
Quarter: 2019Q3

REPORT INFORMATION
  Report Type: Spontaneous
  Country: US (occurrence: US)
  Receive Date: 20190907
  Receipt Date: 20190907
  Transmission Date: 20191005
  Serious: Yes (Other)
  Sender: FDA-Public Use
  Company Number: US-AMGEN-USASP2019140883

PATIENT
  Age: 59 Year
  Sex: Female

DRUGS (1)
  1. REUSABLE AUTOINJECTOR [Suspect]
     Active Substance: DEVICE
     Indication: ANKYLOSING SPONDYLITIS
     Dosage: 50 MILLIGRAM, QWK
     Route: 065
     Dates: start: 20190815

REACTIONS (3)
  - Haemorrhoids [Unknown]
  - Injection site rash [Unknown]
  - Injection site erythema [Unknown]

NARRATIVE: CASE EVENT DATE: 201908
